FAERS Safety Report 9112878 (Version 2)
Quarter: 2013Q2

REPORT INFORMATION
  Report Type: Report from Study
  Country: DE (occurrence: DE)
  Receive Date: 20130211
  Receipt Date: 20130423
  Transmission Date: 20140414
  Serious: Yes (Hospitalization)
  Sender: FDA-Public Use
  Company Number: DE-ROCHE-1064166

PATIENT
  Age: 65 Year
  Sex: Male

DRUGS (1)
  1. BEVACIZUMAB [Suspect]
     Indication: COLON CANCER METASTATIC
     Route: 042

REACTIONS (5)
  - Dyspnoea [Recovered/Resolved]
  - Tachyarrhythmia [Recovered/Resolved]
  - Atrial fibrillation [Unknown]
  - Aortic valve incompetence [Unknown]
  - Ejection fraction decreased [Unknown]
